FAERS Safety Report 11030486 (Version 1)
Quarter: 2015Q2

REPORT INFORMATION
  Report Type: Spontaneous
  Country: US (occurrence: US)
  Receive Date: 20150415
  Receipt Date: 20150415
  Transmission Date: 20150821
  Serious: No
  Sender: FDA-Public Use
  Company Number: US-BRISTOL-MYERS SQUIBB COMPANY-BMS-2015-023930

PATIENT

DRUGS (1)
  1. DASATINIB [Suspect]
     Active Substance: DASATINIB
     Indication: HAEMANGIOPERICYTOMA
     Dosage: 70 MG, BID
     Route: 048

REACTIONS (6)
  - Skin hyperpigmentation [Recovered/Resolved]
  - Periorbital oedema [Unknown]
  - Anaemia [Unknown]
  - Skin hypopigmentation [Recovered/Resolved]
  - Fatigue [Unknown]
  - Off label use [Unknown]
